FAERS Safety Report 7732331-1 (Version None)
Quarter: 2011Q3

REPORT INFORMATION
  Report Type: 
  Country: None (occurrence: None)
  Receive Date: 20110906
  Receipt Date: 20110825
  Transmission Date: 20111222
  Serious: No
  Sender: FDA-Public Use
  Company Number: US-AMGEN-USASP2011043569

PATIENT
  Age: 56 Year
  Sex: Female

DRUGS (8)
  1. CALCIUM CARBONATE [Concomitant]
  2. KLONOPIN [Concomitant]
  3. SYNTHROID [Concomitant]
  4. VITAMIN D [Concomitant]
  5. AMBIEN [Concomitant]
  6. LYRICA [Concomitant]
     Dates: start: 20110101
  7. PROLIA [Suspect]
     Indication: OSTEOPOROSIS POSTMENOPAUSAL
     Dosage: 60 MG, Q6MO
     Dates: start: 20110301
  8. PLAQUENIL [Concomitant]

REACTIONS (1)
  - HYPOAESTHESIA [None]
